FAERS Safety Report 9316160 (Version 1)
Quarter: 2013Q2

REPORT INFORMATION
  Report Type: Spontaneous
  Country: US (occurrence: US)
  Receive Date: 20130530
  Receipt Date: 20130530
  Transmission Date: 20140414
  Serious: Yes (Other)
  Sender: FDA-Public Use
  Company Number: US-009507513-1305USA011961

PATIENT
  Age: 41 Year
  Sex: Female

DRUGS (3)
  1. VICTRELIS [Suspect]
     Indication: HEPATITIS C
     Dosage: UNK
     Route: 048
     Dates: start: 20130428
  2. COPEGUS [Suspect]
     Indication: HEPATITIS C
     Dosage: UNK
  3. PEGASYS [Suspect]
     Indication: HEPATITIS C
     Dosage: UNK
     Dates: start: 20130331

REACTIONS (10)
  - Pneumonia [Unknown]
  - Oropharyngeal pain [Unknown]
  - Bacterial infection [Unknown]
  - Infection [Unknown]
  - Cough [Unknown]
  - Insomnia [Unknown]
  - Pain in extremity [Unknown]
  - Dysgeusia [Unknown]
  - Vomiting [Unknown]
  - Back pain [Unknown]
